FAERS Safety Report 4564839-4 (Version None)
Quarter: 2005Q1

REPORT INFORMATION
  Report Type: 
  Country: None (occurrence: None)
  Receive Date: 20050128
  Receipt Date: 20050118
  Transmission Date: 20050727
  Serious: Yes (Life-Threatening)
  Sender: FDA-Public Use
  Company Number: US-MERCK-0501USA02847

PATIENT
  Age: 83 Year
  Sex: Female

DRUGS (4)
  1. VIOXX [Suspect]
     Indication: ARTHRITIS
     Route: 048
     Dates: start: 20040601, end: 20040901
  2. COUMADIN [Concomitant]
     Route: 065
  3. LIPITOR [Concomitant]
     Route: 065
  4. FOSAMAX [Concomitant]
     Route: 048

REACTIONS (3)
  - FEELING ABNORMAL [None]
  - HYPERTENSION [None]
  - OEDEMA PERIPHERAL [None]
